FAERS Safety Report 14398454 (Version 7)
Quarter: 2020Q3

REPORT INFORMATION
  Report Type: Spontaneous
  Country: US (occurrence: US)
  Receive Date: 20180116
  Receipt Date: 20200825
  Transmission Date: 20201102
  Serious: Yes (Hospitalization, Other)
  Sender: FDA-Public Use
  Company Number: US-BIOGEN-2018BI00510269

PATIENT
  Age: 48 Year
  Sex: Male

DRUGS (7)
  1. TECFIDERA [Suspect]
     Active Substance: DIMETHYL FUMARATE
     Dosage: MAINTENANCE DOSE
     Route: 065
  2. TRAZODONE [Concomitant]
     Active Substance: TRAZODONE HYDROCHLORIDE
     Indication: PRODUCT USED FOR UNKNOWN INDICATION
     Dosage: MAY REPEAT IN 1 HOUR IF NEEDED. 1 TABLET AT BEDTIME PRN
     Route: 050
  3. TECFIDERA [Suspect]
     Active Substance: DIMETHYL FUMARATE
     Route: 065
     Dates: start: 201501
  4. TECFIDERA [Suspect]
     Active Substance: DIMETHYL FUMARATE
     Dosage: MAINTENANCE DOSE
     Route: 050
     Dates: start: 2017
  5. TECFIDERA [Suspect]
     Active Substance: DIMETHYL FUMARATE
     Indication: RELAPSING-REMITTING MULTIPLE SCLEROSIS
     Dosage: STARTING DOSE
     Route: 050
     Dates: start: 201505, end: 201505
  6. TECFIDERA [Suspect]
     Active Substance: DIMETHYL FUMARATE
     Dosage: MAINTENANCE DOSE
     Route: 050
     Dates: start: 201505
  7. TECFIDERA [Suspect]
     Active Substance: DIMETHYL FUMARATE
     Dosage: MAINTENANCE DOSE
     Route: 050
     Dates: start: 20150310

REACTIONS (14)
  - Stress [Unknown]
  - Depression [Unknown]
  - Seizure [Unknown]
  - Tumour inflammation [Unknown]
  - Feeling abnormal [Unknown]
  - Neurological procedural complication [Unknown]
  - Brain oedema [Unknown]
  - Hemiparesis [Unknown]
  - Product dose omission issue [Unknown]
  - Meningioma benign [Unknown]
  - Generalised tonic-clonic seizure [Recovered/Resolved]
  - Somnolence [Unknown]
  - Fatigue [Unknown]
  - Tumour rupture [Unknown]

NARRATIVE: CASE EVENT DATE: 201708
